FAERS Safety Report 15099017 (Version 2)
Quarter: 2018Q2

REPORT INFORMATION
  Report Type: Spontaneous
  Country: IT (occurrence: IT)
  Receive Date: 20180630
  Receipt Date: 20180630
  Transmission Date: 20180711
  Serious: Yes (Hospitalization)
  Sender: FDA-Public Use
  Company Number: IT-TEVA-2018-IT-916966

PATIENT
  Age: 74 Year
  Sex: Female

DRUGS (8)
  1. ASCRIPTIN [Suspect]
     Active Substance: ASPIRIN
     Indication: PLATELET AGGREGATION INHIBITION
     Dosage: 300 MILLIGRAM DAILY;
     Route: 048
     Dates: start: 20110101, end: 20180118
  2. PREGABALIN. [Concomitant]
     Active Substance: PREGABALIN
     Route: 048
  3. DENIBAN 50 MG COMPRESSE [Concomitant]
     Route: 048
  4. FULCRO 200 MG CAPSULE RIGIDE [Concomitant]
     Active Substance: FENOFIBRATE
     Route: 048
  5. LORAZEPAM. [Concomitant]
     Active Substance: LORAZEPAM
     Route: 048
  6. LOBIDIUR 5 MG/12,5 MG COMPRESSE RIVESTITE CON FILM [Concomitant]
     Route: 048
  7. SERTRALINE HYDROCHLORIDE. [Suspect]
     Active Substance: SERTRALINE HYDROCHLORIDE
     Indication: DEPRESSION
     Dosage: 100 MILLIGRAM DAILY;
     Route: 048
  8. LAMICTAL 50 MG COMPRESSE MASTICABILI/DISPERSIBILI [Concomitant]
     Route: 048

REACTIONS (2)
  - Subarachnoid haemorrhage [Recovering/Resolving]
  - Subdural haematoma [Recovering/Resolving]

NARRATIVE: CASE EVENT DATE: 20180118
